FAERS Safety Report 8719268 (Version 2)
Quarter: 2013Q4

REPORT INFORMATION
  Report Type: Spontaneous
  Country: US (occurrence: US)
  Receive Date: 20120813
  Receipt Date: 20131101
  Transmission Date: 20140711
  Serious: No
  Sender: FDA-Public Use
  Company Number: US-009507513-1207USA009147

PATIENT
  Age: 32 Year
  Sex: Male

DRUGS (3)
  1. CRIXIVAN [Suspect]
     Indication: HIV INFECTION
     Route: 048
  2. VENLAFAXINE HYDROCHLORIDE [Interacting]
     Indication: MAJOR DEPRESSION
     Dosage: 150 MG, QD
  3. LAMIVUDINE (+) ZIDOVUDINE [Concomitant]
     Indication: HIV INFECTION

REACTIONS (2)
  - Drug interaction [Unknown]
  - Therapeutic response decreased [Unknown]
